FAERS Safety Report 12268676 (Version 1)
Quarter: 2016Q2

REPORT INFORMATION
  Report Type: Spontaneous
  Country: CN (occurrence: CN)
  Receive Date: 20160414
  Receipt Date: 20160414
  Transmission Date: 20160815
  Serious: Yes (Other)
  Sender: FDA-Public Use
  Company Number: CN-PFIZER INC-2016212320

PATIENT
  Sex: Male
  Weight: 68 kg

DRUGS (2)
  1. CLOPIDOGREL HYDROGEN SULPHATE [Concomitant]
     Indication: CORONARY ARTERY BYPASS
     Dosage: 75 MG, ONCE A DAY
     Route: 048
     Dates: start: 20150308, end: 20150411
  2. LIPITOR [Suspect]
     Active Substance: ATORVASTATIN CALCIUM
     Indication: CORONARY ARTERY BYPASS
     Dosage: 10 MG, ONCE A DAY
     Route: 048
     Dates: start: 20150308, end: 20150411

REACTIONS (4)
  - Haemorrhage subcutaneous [Recovering/Resolving]
  - Abdominal distension [Recovering/Resolving]
  - Nausea [Recovering/Resolving]
  - Dizziness [Recovering/Resolving]

NARRATIVE: CASE EVENT DATE: 20150408
